FAERS Safety Report 9660418 (Version 1)
Quarter: 2013Q4

REPORT INFORMATION
  Report Type: Spontaneous
  Country: US (occurrence: US)
  Receive Date: 20131031
  Receipt Date: 20131031
  Transmission Date: 20140711
  Serious: Yes (Hospitalization, Other)
  Sender: FDA-Public Use
  Company Number: US-B.I. PHARMACEUTICALS,INC./RIDGEFIELD-2013-BI-34398BP

PATIENT
  Age: 70 Year
  Sex: Male
  Weight: 98 kg

DRUGS (3)
  1. SPIRIVA [Suspect]
     Indication: CHRONIC OBSTRUCTIVE PULMONARY DISEASE
     Dosage: 18 MCG
     Route: 055
     Dates: start: 201211
  2. SPIRIVA [Suspect]
     Dosage: 18 MCG
     Route: 055
     Dates: start: 200901, end: 200901
  3. SPIRIVA [Suspect]
     Dosage: 18 MCG
     Route: 048

REACTIONS (3)
  - Prostate cancer [Not Recovered/Not Resolved]
  - Haemoglobin increased [Recovered/Resolved]
  - Incorrect route of drug administration [Recovered/Resolved]
